FAERS Safety Report 5804513-7 (Version None)
Quarter: 2008Q3

REPORT INFORMATION
  Report Type: 
  Country: None (occurrence: None)
  Receive Date: 20080707
  Receipt Date: 20080707
  Transmission Date: 20090109
  Serious: No
  Sender: FDA-Public Use
  Company Number: None

PATIENT
  Age: 64 Year
  Sex: Female
  Weight: 90.7194 kg

DRUGS (1)
  1. LEVAQUIN [Suspect]
     Indication: PULMONARY CONGESTION
     Dosage: 1 DAILY PO
     Route: 048
     Dates: start: 20080313, end: 20080315

REACTIONS (5)
  - CHLOROPSIA [None]
  - CHROMATOPSIA [None]
  - TENDON RUPTURE [None]
  - VERTIGO [None]
  - XANTHOPSIA [None]
